FAERS Safety Report 7815660-2 (Version None)
Quarter: 2011Q4

REPORT INFORMATION
  Report Type: 
  Country: None (occurrence: None)
  Receive Date: 20111014
  Receipt Date: 20111003
  Transmission Date: 20120403
  Serious: No
  Sender: FDA-Public Use
  Company Number: SE-NOVOPROD-334838

PATIENT

DRUGS (7)
  1. JANUVIA [Concomitant]
     Indication: TYPE 2 DIABETES MELLITUS
  2. PARAFLEX                           /00041601/ [Concomitant]
  3. METFORMIN HYDROCHLORIDE [Concomitant]
     Indication: TYPE 2 DIABETES MELLITUS
  4. ASPIRIN [Concomitant]
  5. LEVODOPA [Concomitant]
  6. REPAGLINIDE [Suspect]
     Indication: TYPE 2 DIABETES MELLITUS
     Dosage: UNK
     Route: 065
  7. PRAMIPEXOLE DIHYDROCHLORIDE [Concomitant]

REACTIONS (2)
  - RESTLESSNESS [None]
  - MUSCLE SPASMS [None]
